FAERS Safety Report 6528248-0 (Version None)
Quarter: 2010Q1

REPORT INFORMATION
  Report Type: 
  Country: None (occurrence: None)
  Receive Date: 20100105
  Receipt Date: 20100105
  Transmission Date: 20100710
  Serious: Yes (Other)
  Sender: FDA-Public Use
  Company Number: None

PATIENT
  Age: 55 Year
  Sex: Female
  Weight: 53.978 kg

DRUGS (1)
  1. LEVAQUIN [Suspect]
     Indication: BRONCHITIS
     Dosage: 1 TABLET DAILY PO
     Route: 048
     Dates: start: 20091112, end: 20091120

REACTIONS (12)
  - ABDOMINAL DISTENSION [None]
  - ABDOMINAL PAIN UPPER [None]
  - ASTHENIA [None]
  - DEPRESSION [None]
  - DIAPHRAGMALGIA [None]
  - DIARRHOEA [None]
  - DIZZINESS [None]
  - HYPOPHAGIA [None]
  - MIDDLE INSOMNIA [None]
  - NIGHTMARE [None]
  - PAIN IN EXTREMITY [None]
  - WEIGHT DECREASED [None]
